FAERS Safety Report 23042294 (Version 1)
Quarter: 2023Q4

REPORT INFORMATION
  Report Type: Spontaneous
  Country: US (occurrence: US)
  Receive Date: 20231008
  Receipt Date: 20231008
  Transmission Date: 20240110
  Serious: No
  Sender: FDA-Public Use
  Company Number: US-BRISTOL-MYERS SQUIBB COMPANY-2023-142004

PATIENT
  Age: 70 Year
  Sex: Male

DRUGS (3)
  1. ORENCIA [Suspect]
     Active Substance: ABATACEPT
     Indication: Product used for unknown indication
     Route: 058
  2. PREDNISONE [Suspect]
     Active Substance: PREDNISONE
     Indication: Product used for unknown indication
  3. PREDNISONE [Suspect]
     Active Substance: PREDNISONE

REACTIONS (1)
  - Rheumatoid arthritis [Unknown]
